FAERS Safety Report 23060247 (Version 1)
Quarter: 2023Q4

REPORT INFORMATION
  Report Type: Report from Study
  Country: US (occurrence: None)
  Receive Date: 20231012
  Receipt Date: 20231012
  Transmission Date: 20240109
  Serious: Yes (Hospitalization, Other)
  Sender: FDA-Public Use
  Company Number: 2023A226335

PATIENT
  Sex: Male

DRUGS (1)
  1. CALQUENCE [Suspect]
     Active Substance: ACALABRUTINIB
     Indication: Chronic lymphocytic leukaemia
     Route: 048
     Dates: start: 20230920

REACTIONS (8)
  - Pyrexia [Unknown]
  - Pneumonia [Unknown]
  - Diarrhoea [Unknown]
  - White blood cell count increased [Unknown]
  - Fatigue [Unknown]
  - Hyperhidrosis [Unknown]
  - Red blood cell count decreased [Unknown]
  - Alopecia [Unknown]
